FAERS Safety Report 7194091-5 (Version None)
Quarter: 2010Q4

REPORT INFORMATION
  Report Type: 
  Country: None (occurrence: None)
  Receive Date: 20101223
  Receipt Date: 20101215
  Transmission Date: 20110411
  Serious: Yes (Death, Hospitalization)
  Sender: FDA-Public Use
  Company Number: GB-CELGENEUS-167-21880-10120399

PATIENT
  Sex: Male
  Weight: 103.2 kg

DRUGS (8)
  1. REVLIMID [Suspect]
     Indication: MANTLE CELL LYMPHOMA
     Route: 048
     Dates: start: 20101129
  2. FUROSEMIDE [Concomitant]
     Route: 048
  3. LANSOPRAZOLE [Concomitant]
     Indication: PROPHYLAXIS
     Route: 048
  4. CITALOPRAM HYDROBROMIDE [Concomitant]
     Indication: DEPRESSION
     Route: 048
  5. CLEXANE [Concomitant]
     Route: 058
  6. INSULIN [Concomitant]
     Route: 058
  7. BISOPROLOL [Concomitant]
     Indication: HYPERTENSION
     Route: 048
  8. NEUPOGEN [Concomitant]
     Route: 058

REACTIONS (2)
  - PNEUMOCYSTIS JIROVECI PNEUMONIA [None]
  - RESPIRATORY FAILURE [None]
